FAERS Safety Report 18808917 (Version 1)
Quarter: 2021Q1

REPORT INFORMATION
  Report Type: Report from Study
  Country: US (occurrence: US)
  Receive Date: 20210129
  Receipt Date: 20210129
  Transmission Date: 20210419
  Serious: No
  Sender: FDA-Public Use
  Company Number: US-AGIOS-2101US02479

PATIENT

DRUGS (2)
  1. TIBSOVO [Suspect]
     Active Substance: IVOSIDENIB
     Indication: HEPATIC CANCER
     Dosage: 250 MILLIGRAM, 2 TABLET (500 MG), QD
     Route: 048
     Dates: start: 2020, end: 20210124
  2. TIBSOVO [Suspect]
     Active Substance: IVOSIDENIB
     Dosage: 250 MILLIGRAM, 2 TABLET (500 MG), QD
     Route: 048

REACTIONS (4)
  - Renal disorder [Unknown]
  - Off label use [Unknown]
  - Product dose omission issue [Unknown]
  - Therapy cessation [Recovered/Resolved]

NARRATIVE: CASE EVENT DATE: 2020
